FAERS Safety Report 14514402 (Version 3)
Quarter: 2018Q2

REPORT INFORMATION
  Report Type: Spontaneous
  Country: JP (occurrence: JP)
  Receive Date: 20180209
  Receipt Date: 20180416
  Transmission Date: 20180711
  Serious: Yes (Hospitalization)
  Sender: FDA-Public Use
  Company Number: JP-ALLERGAN-1000074473

PATIENT
  Weight: 2.69 kg

DRUGS (6)
  1. MEILAX [Interacting]
     Active Substance: ETHYL LOFLAZEPATE
     Dosage: 1 MG, QD
     Route: 064
     Dates: start: 20150113, end: 20150126
  2. SODIUM RABERPRAZOLE [Concomitant]
     Indication: MATERNAL EXPOSURE TIMING UNSPECIFIED
     Dosage: 10 MG, QD
     Route: 048
     Dates: start: 201406
  3. SODIUM RABERPRAZOLE [Concomitant]
     Dosage: 10 MG, QD
     Route: 064
     Dates: start: 201501, end: 20150126
  4. MEILAX [Interacting]
     Active Substance: ETHYL LOFLAZEPATE
     Indication: MATERNAL EXPOSURE TIMING UNSPECIFIED
     Dosage: 1 MG, QPM
     Route: 048
     Dates: start: 201406
  5. ESCITALOPRAM OXALATE - BP [Suspect]
     Active Substance: ESCITALOPRAM OXALATE
     Indication: MATERNAL EXPOSURE TIMING UNSPECIFIED
     Dosage: 10 MG, QD
     Route: 064
     Dates: start: 201406
  6. ESCITALOPRAM OXALATE - BP [Interacting]
     Active Substance: ESCITALOPRAM OXALATE
     Dosage: 10 MG, QD
     Route: 064
     Dates: start: 20150113, end: 20150126

REACTIONS (5)
  - Neonatal oversedation [Recovered/Resolved]
  - Drug interaction [Recovered/Resolved]
  - Foetal exposure during pregnancy [Unknown]
  - Hypotonia [Recovered/Resolved]
  - Respiratory disorder neonatal [Recovered/Resolved]

NARRATIVE: CASE EVENT DATE: 20150127
